FAERS Safety Report 7210367-7 (Version None)
Quarter: 2011Q1

REPORT INFORMATION
  Report Type: 
  Country: None (occurrence: None)
  Receive Date: 20110105
  Receipt Date: 20101222
  Transmission Date: 20110831
  Serious: Yes (Hospitalization)
  Sender: FDA-Public Use
  Company Number: PHHY2010BR87674

PATIENT
  Sex: Male

DRUGS (2)
  1. HYGROTON [Suspect]
     Dosage: 25 MG
  2. DIOVAN [Suspect]
     Dosage: 160 MG, TWO TABLETS AT ONCE

REACTIONS (2)
  - PNEUMONIA [None]
  - CONVULSION [None]
